FAERS Safety Report 12720325 (Version 1)
Quarter: 2016Q3

REPORT INFORMATION
  Report Type: Spontaneous
  Country: GB (occurrence: GB)
  Receive Date: 20160907
  Receipt Date: 20160907
  Transmission Date: 20161109
  Serious: Yes (Disabling, Other)
  Sender: FDA-Public Use
  Company Number: GB-SUN PHARMACEUTICAL INDUSTRIES LTD-2016RR-123084

PATIENT
  Age: 17 Year
  Sex: Male

DRUGS (1)
  1. FLUOXETINE [Suspect]
     Active Substance: FLUOXETINE HYDROCHLORIDE
     Indication: DEPRESSION
     Route: 065

REACTIONS (6)
  - Abnormal weight gain [Recovered/Resolved with Sequelae]
  - Pruritus generalised [Recovered/Resolved]
  - Photophobia [Recovered/Resolved]
  - Suicidal ideation [Recovered/Resolved with Sequelae]
  - Deafness [Not Recovered/Not Resolved]
  - Anxiety [Recovered/Resolved with Sequelae]
